FAERS Safety Report 4710588-9 (Version None)
Quarter: 2005Q3

REPORT INFORMATION
  Report Type: 
  Country: None (occurrence: None)
  Receive Date: 20050707
  Receipt Date: 20050617
  Transmission Date: 20060218
  Serious: Yes (Other)
  Sender: FDA-Public Use
  Company Number: EWC050544180

PATIENT
  Sex: Female

DRUGS (4)
  1. FORSTEO (TERIPARATIDE) [Suspect]
     Indication: OSTEOPOROSIS
     Dosage: 20 UG/1 DAY
     Dates: start: 20041219
  2. ASASANTIN RETARD [Concomitant]
  3. CARDIZEM /00489701/(DILTIAZEM /00489701/) [Concomitant]
  4. LOVACOL (LOVASTATIN) [Concomitant]

REACTIONS (8)
  - ANOREXIA [None]
  - BASAL CELL CARCINOMA [None]
  - DRY SKIN [None]
  - FATIGUE [None]
  - PIGMENTED NAEVUS [None]
  - POLLAKIURIA [None]
  - THIRST [None]
  - WEIGHT DECREASED [None]
